FAERS Safety Report 7141354-5 (Version None)
Quarter: 2010Q4

REPORT INFORMATION
  Report Type: 
  Country: None (occurrence: None)
  Receive Date: 20101122
  Receipt Date: 20101111
  Transmission Date: 20110411
  Serious: Yes (Other)
  Sender: FDA-Public Use
  Company Number: 2010-3951

PATIENT

DRUGS (2)
  1. DYSPORT [Suspect]
     Indication: THERAPEUTIC PROCEDURE
     Dosage: NOT REPORTED
     Dates: start: 20100101, end: 20100101
  2. ABOBOTNLINUM TOXIN A [Suspect]

REACTIONS (2)
  - DYSPHAGIA [None]
  - GASTROINTESTINAL TUBE INSERTION [None]
